FAERS Safety Report 24128625 (Version 3)
Quarter: 2024Q3

REPORT INFORMATION
  Report Type: Spontaneous
  Country: US (occurrence: US)
  Receive Date: 20240723
  Receipt Date: 20240723
  Transmission Date: 20241017
  Serious: No
  Sender: NOVO NORDISK
  Company Number: US-NOVOPROD-1176068

PATIENT
  Age: 78 Year
  Sex: Female

DRUGS (3)
  1. RYBELSUS [Suspect]
     Active Substance: SEMAGLUTIDE
     Indication: Impaired fasting glucose
     Dosage: UNK
     Route: 048
     Dates: start: 20231212, end: 20240120
  2. RYBELSUS [Suspect]
     Active Substance: SEMAGLUTIDE
     Indication: Impaired fasting glucose
     Dosage: UNK
     Route: 048
     Dates: start: 20231212, end: 20240120
  3. RYBELSUS [Suspect]
     Active Substance: SEMAGLUTIDE
     Indication: Impaired fasting glucose
     Dosage: UNK
     Route: 048
     Dates: start: 20231212, end: 20240120

REACTIONS (5)
  - Dry mouth [Recovered/Resolved]
  - Peripheral swelling [Recovered/Resolved]
  - Gastrointestinal pain [Recovered/Resolved]
  - Constipation [Recovered/Resolved]
  - Off label use [Unknown]

NARRATIVE: CASE EVENT DATE: 20231214
